FAERS Safety Report 6102117-2 (Version None)
Quarter: 2009Q1

REPORT INFORMATION
  Report Type: 
  Country: None (occurrence: None)
  Receive Date: 20090304
  Receipt Date: 20090302
  Transmission Date: 20090719
  Serious: Yes (Hospitalization)
  Sender: FDA-Public Use
  Company Number: US-MERCK-0903USA00292

PATIENT
  Age: 68 Year
  Sex: Female

DRUGS (11)
  1. FOSAMAX PLUS D [Suspect]
     Indication: OSTEOPENIA
     Route: 048
     Dates: start: 20020101, end: 20090101
  2. LUNESTA [Concomitant]
     Route: 065
  3. WALGREENS FINEST NATURAL FLAX SEED OIL WITH OMEGA 3 [Concomitant]
     Route: 065
  4. LOTREL [Concomitant]
     Route: 065
  5. OMEPRAZOLE [Concomitant]
     Route: 065
  6. LEVOTHYROXINE SODIUM [Concomitant]
     Route: 065
  7. PRAVASTATIN SODIUM [Concomitant]
     Route: 065
  8. ALPRAZOLAM [Concomitant]
     Route: 065
  9. FLUTICASONE PROPIONATE [Concomitant]
     Route: 065
  10. ASTELIN [Concomitant]
     Route: 065
  11. XALATAN [Concomitant]
     Route: 065

REACTIONS (4)
  - ARTHRALGIA [None]
  - BONE PAIN [None]
  - ORAL DISORDER [None]
  - PLANTAR FASCIITIS [None]
